FAERS Safety Report 9338696 (Version 1)
Quarter: 2013Q2

REPORT INFORMATION
  Report Type: Spontaneous
  Country: BR (occurrence: BR)
  Receive Date: 20130610
  Receipt Date: 20130610
  Transmission Date: 20140414
  Serious: Yes (Other)
  Sender: FDA-Public Use
  Company Number: BR-ACCORD-017947

PATIENT
  Age: 43 Year
  Sex: Female
  Weight: 86 kg

DRUGS (5)
  1. PACLITAXEL [Suspect]
     Indication: BREAST CANCER
     Dosage: ALSO RECEIVED PACLITAXEL 175 MG/M? ON 21-FEB-2013 UNEVENTFUL
     Route: 042
     Dates: start: 20130313, end: 20130313
  2. NAUSEDRON [Concomitant]
     Route: 042
     Dates: start: 20130313, end: 20130313
  3. RANITIDINE [Concomitant]
     Route: 042
     Dates: start: 20130313, end: 20130313
  4. DIPHENHYDRAMINE [Concomitant]
     Route: 042
     Dates: start: 20130313, end: 20130313
  5. DEXAMETHASONE [Concomitant]
     Route: 042
     Dates: start: 20130313, end: 20130313

REACTIONS (2)
  - Erythema [Recovered/Resolved]
  - Hypertension [Recovered/Resolved]
